FAERS Safety Report 6790402-0 (Version None)
Quarter: 2010Q2

REPORT INFORMATION
  Report Type: 
  Country: None (occurrence: None)
  Receive Date: 20100624
  Receipt Date: 20100617
  Transmission Date: 20101027
  Serious: Yes (Hospitalization)
  Sender: FDA-Public Use
  Company Number: PHHY2010MX32274

PATIENT
  Age: 74 Year
  Sex: Male

DRUGS (2)
  1. STALEVO 100 [Suspect]
     Indication: PARKINSON'S DISEASE
     Dosage: 3 TABLETS DAILY
     Route: 048
     Dates: start: 20091121
  2. DIOVAN HCT [Suspect]
     Indication: HYPERTENSION
     Dosage: 1 TABLET,UNK
     Dates: start: 20040618

REACTIONS (5)
  - BENIGN PROSTATIC HYPERPLASIA [None]
  - BLADDER CATHETERISATION [None]
  - PROSTATIC OPERATION [None]
  - URINARY TRACT INFECTION [None]
  - URINE FLOW DECREASED [None]
